FAERS Safety Report 9234932 (Version 2)
Quarter: 2013Q2

REPORT INFORMATION
  Report Type: Spontaneous
  Country: FI (occurrence: FI)
  Receive Date: 20130416
  Receipt Date: 20130419
  Transmission Date: 20140414
  Serious: Yes (Life-Threatening, Hospitalization, Disabling)
  Sender: FDA-Public Use
  Company Number: FI-TEVA-397887USA

PATIENT
  Age: 82 Year
  Sex: Male

DRUGS (7)
  1. TREANDA [Suspect]
     Indication: B-CELL LYMPHOMA
     Route: 042
     Dates: start: 201203, end: 201208
  2. MABTHERA [Suspect]
     Indication: B-CELL LYMPHOMA
     Route: 042
     Dates: start: 200407, end: 201208
  3. CARDACE [Concomitant]
     Dosage: 2.5 MILLIGRAM DAILY;
     Route: 048
  4. FURESIS [Concomitant]
     Dosage: 40 MILLIGRAM DAILY;
     Route: 048
  5. ORMOX [Concomitant]
     Dosage: 10 MILLIGRAM DAILY;
     Route: 048
  6. KLEXANE [Concomitant]
     Dosage: 2 X 60 MG
     Route: 058
  7. KALCIPOS-D [Concomitant]
     Dosage: 400 IU
     Route: 048

REACTIONS (1)
  - Progressive multifocal leukoencephalopathy [Not Recovered/Not Resolved]
